FAERS Safety Report 15443208 (Version 8)
Quarter: 2020Q4

REPORT INFORMATION
  Report Type: Spontaneous
  Country: FR (occurrence: FR)
  Receive Date: 20180928
  Receipt Date: 20201126
  Transmission Date: 20210113
  Serious: Yes (Hospitalization, Other)
  Sender: FDA-Public Use
  Company Number: FR-JNJFOC-20180903971

PATIENT
  Age: 23 Year
  Sex: Male
  Weight: 49 kg

DRUGS (25)
  1. SOLU-MEDROL [Suspect]
     Active Substance: METHYLPREDNISOLONE SODIUM SUCCINATE
     Indication: CROHN^S DISEASE
     Dosage: DRUG START PERIOD?148 (DAYS)
     Route: 048
     Dates: start: 20080811
  2. PRIMAXIN IV [Suspect]
     Active Substance: CILASTATIN SODIUM\IMIPENEM
     Indication: ABSCESS
     Dosage: DRUG START PERIOD?15 (DAYS)
     Route: 042
     Dates: start: 20081222, end: 20090112
  3. VANCOMYCIN HCL [Suspect]
     Active Substance: VANCOMYCIN HYDROCHLORIDE
     Indication: ABSCESS
     Dosage: DRUG START PERIOD?17 (DAYS), DRUG LAST PERIOD?07 (DAYS)
     Route: 042
     Dates: start: 20081220, end: 20090112
  4. CALCIUM CARBONATE. [Suspect]
     Active Substance: CALCIUM CARBONATE
     Indication: PRODUCT USED FOR UNKNOWN INDICATION
     Dosage: DRUG START PERIOD?10 (DAYS)
     Route: 048
     Dates: start: 20081227
  5. CALCIUM CHOLECALCIFEROL BERES [Suspect]
     Active Substance: CALCIUM CARBONATE\CHOLECALCIFEROL
     Indication: PRODUCT USED FOR UNKNOWN INDICATION
     Route: 048
  6. FLUCONAZOLE. [Suspect]
     Active Substance: FLUCONAZOLE
     Route: 048
     Dates: start: 20090119, end: 20090130
  7. METHYLPREDNISOLONE SODIUM SUCCINATE. [Suspect]
     Active Substance: METHYLPREDNISOLONE SODIUM SUCCINATE
     Indication: CROHN^S DISEASE
     Route: 042
     Dates: start: 20090120
  8. SOLU-MEDROL [Suspect]
     Active Substance: METHYLPREDNISOLONE SODIUM SUCCINATE
     Route: 042
     Dates: start: 20090120
  9. LOVENOX [Suspect]
     Active Substance: ENOXAPARIN SODIUM
     Indication: PRODUCT USED FOR UNKNOWN INDICATION
     Dosage: QD
     Route: 058
     Dates: start: 20081224
  10. PEVARYL                            /00418501/ [Suspect]
     Active Substance: ECONAZOLE NITRATE
     Indication: RASH
     Route: 061
     Dates: start: 20090114
  11. STRUCTOKABIVEN [Suspect]
     Active Substance: AMINO ACIDS\DEXTROSE\ELECTROLYTES NOS
     Indication: MALNUTRITION
     Dosage: DRUG START PERIOD?9 (DAYS), LIPID EMULSION
     Route: 041
     Dates: start: 20081228, end: 20090207
  12. TRANXENE [Suspect]
     Active Substance: CLORAZEPATE DIPOTASSIUM
     Indication: ANXIETY
     Dosage: 1 DF, QD
     Route: 042
     Dates: start: 20081222, end: 20090123
  13. LEKOVIT CA [Suspect]
     Active Substance: CALCIUM CARBONATE\CHOLECALCIFEROL
     Indication: PRODUCT USED FOR UNKNOWN INDICATION
     Dosage: TRADE NAME: CACIT LEKOVIT CA (CALCIUM CARBONATE/COLECALCIFEROL)
     Route: 048
     Dates: start: 20081227
  14. VANCOMYCIN HCL [Suspect]
     Active Substance: VANCOMYCIN HYDROCHLORIDE
     Dosage: DRUG START PERIOD?17 (DAYS), DRUG LAST PERIOD?07 (DAYS)
     Route: 042
     Dates: start: 20081222, end: 20090112
  15. CACIT [CALCIUM CARBONATE;CITRIC ACID] [Suspect]
     Active Substance: CALCIUM CARBONATE\CITRIC ACID MONOHYDRATE
     Indication: PRODUCT USED FOR UNKNOWN INDICATION
     Route: 048
     Dates: start: 20081227
  16. ALANINE [Suspect]
     Active Substance: ALANINE
     Indication: MALNUTRITION
     Route: 041
     Dates: start: 20081228, end: 20090207
  17. AERIUS (EBASTINE) [Suspect]
     Active Substance: EBASTINE
     Indication: RASH
     Dosage: GENERIC REPORTED AS EBASTINE
     Route: 048
     Dates: start: 20090107
  18. FLUCONAZOLE. [Suspect]
     Active Substance: FLUCONAZOLE
     Indication: RASH
     Dosage: 100 MG QD
     Route: 048
     Dates: start: 20090119
  19. SPECIAFOLDINE [Suspect]
     Active Substance: FOLIC ACID
     Indication: PRODUCT USED FOR UNKNOWN INDICATION
     Dosage: DRUG START PERIOD?14 (DAYS)
     Route: 048
     Dates: start: 20081223
  20. REMICADE [Suspect]
     Active Substance: INFLIXIMAB
     Indication: CROHN^S DISEASE
     Route: 042
     Dates: start: 20090120
  21. METHYLPREDNISOLONE SODIUM SUCCINATE. [Suspect]
     Active Substance: METHYLPREDNISOLONE SODIUM SUCCINATE
     Indication: ABSCESS
     Route: 042
     Dates: start: 20081112, end: 20091112
  22. STRUCTOKABIVEN [Suspect]
     Active Substance: AMINO ACIDS\DEXTROSE\ELECTROLYTES NOS
     Indication: PARENTERAL NUTRITION
     Dosage: LIPID EMULSION?DRUG START PERIOD?9 (DAYS)
     Route: 065
  23. ALANINE [Suspect]
     Active Substance: ALANINE
     Indication: PARENTERAL NUTRITION
     Route: 041
  24. FLUCONAZOLE. [Suspect]
     Active Substance: FLUCONAZOLE
     Route: 048
     Dates: start: 20090119, end: 20090130
  25. TIENAM [Suspect]
     Active Substance: CILASTATIN SODIUM\IMIPENEM
     Indication: ABSCESS
     Dosage: DRUG START PERIOD?15 (DAYS)
     Route: 042
     Dates: start: 20081222, end: 20090112

REACTIONS (3)
  - Hepatitis [Recovering/Resolving]
  - Fungal test positive [Unknown]
  - Weight decreased [Unknown]

NARRATIVE: CASE EVENT DATE: 20090106
